FAERS Safety Report 7270690-7 (Version None)
Quarter: 2011Q1

REPORT INFORMATION
  Report Type: 
  Country: None (occurrence: None)
  Receive Date: 20110202
  Receipt Date: 20110125
  Transmission Date: 20110831
  Serious: Yes (Other)
  Sender: FDA-Public Use
  Company Number: B0691878A

PATIENT
  Age: 11 Year
  Sex: Male

DRUGS (1)
  1. SERETIDE [Suspect]
     Indication: ASTHMA
     Route: 055
     Dates: start: 20070201, end: 20101101

REACTIONS (5)
  - ADRENAL INSUFFICIENCY [None]
  - SKIN DISCOLOURATION [None]
  - DYSPHONIA [None]
  - SPERMATORRHOEA [None]
  - PUBERTY [None]
